FAERS Safety Report 5594981-0 (Version None)
Quarter: 2007Q4

REPORT INFORMATION
  Report Type: 
  Country: None (occurrence: None)
  Receive Date: 20071218
  Receipt Date: 20070917
  Transmission Date: 20080405
  Serious: Yes (Hospitalization, Other)
  Sender: FDA-Public Use
  Company Number: 2006113968

PATIENT
  Age: 67 Year
  Sex: Female
  Weight: 77.1 kg

DRUGS (3)
  1. BEXTRA [Suspect]
     Indication: PAIN
     Dosage: 20 MG (20 MG, 1 IN 1 D)
     Dates: start: 20040930
  2. VIOXX [Suspect]
     Indication: ARTHRITIS
     Dosage: 25 MG (25 MG, 1 IN 1 D)
     Dates: start: 20020301, end: 20040930
  3. NITROQUICK (GLYCERYL TRINITRATE) [Concomitant]

REACTIONS (1)
  - MYOCARDIAL INFARCTION [None]
